FAERS Safety Report 11990195 (Version 2)
Quarter: 2016Q1

REPORT INFORMATION
  Report Type: Spontaneous
  Country: US (occurrence: US)
  Receive Date: 20160202
  Receipt Date: 20160222
  Transmission Date: 20160526
  Serious: Yes (Death, Hospitalization, Other)
  Sender: FDA-Public Use
  Company Number: US-B.I. PHARMACEUTICALS,INC./RIDGEFIELD-2016-BI-05444BP

PATIENT
  Age: 76 Year
  Sex: Female
  Weight: 51.26 kg

DRUGS (1)
  1. SPIRIVA [Suspect]
     Active Substance: TIOTROPIUM BROMIDE MONOHYDRATE
     Indication: PRODUCT USED FOR UNKNOWN INDICATION
     Dosage: 18 MCG
     Route: 065
     Dates: start: 201302

REACTIONS (8)
  - Fall [Recovered/Resolved]
  - Death [Fatal]
  - Hepatic neoplasm [Unknown]
  - Lung neoplasm [Unknown]
  - Syncope [Unknown]
  - Metastases to lymph nodes [Unknown]
  - Hip fracture [Unknown]
  - Ocular neoplasm [Unknown]

NARRATIVE: CASE EVENT DATE: 2016
